FAERS Safety Report 15096454 (Version 6)
Quarter: 2018Q3

REPORT INFORMATION
  Report Type: Spontaneous
  Country: DE (occurrence: DE)
  Receive Date: 20180702
  Receipt Date: 20180822
  Transmission Date: 20181010
  Serious: Yes (Congenital Anomaly, Other)
  Sender: FDA-Public Use
  Company Number: PHHY2018DE028853

PATIENT
  Sex: Female

DRUGS (8)
  1. RAMIPRIL. [Suspect]
     Active Substance: RAMIPRIL
     Indication: FOETAL EXPOSURE DURING PREGNANCY
     Dosage: 2.5 MG, UNK (EXPOSURE DURATION: 0?8 WEEKS)
     Route: 064
  2. FUROSEMIDE. [Concomitant]
     Active Substance: FUROSEMIDE
     Indication: FOETAL EXPOSURE DURING PREGNANCY
     Dosage: EXPOSURE DURATION: 5+4 ? 19+5 WEEKS
     Route: 065
  3. OMEPRAZOLE. [Concomitant]
     Active Substance: OMEPRAZOLE
     Indication: FOETAL EXPOSURE DURING PREGNANCY
     Dosage: EXPOSURE DURATION 0?8 WEEKS
     Route: 064
  4. TORASEMIDE [Concomitant]
     Active Substance: TORSEMIDE
     Indication: FOETAL EXPOSURE DURING PREGNANCY
     Dosage: EXPOSURE DURATION: 0?5 WEEKS
     Route: 064
  5. TACROLIMUS. [Concomitant]
     Active Substance: TACROLIMUS
     Indication: FOETAL EXPOSURE DURING PREGNANCY
     Dosage: MATERNAL DOSE: UNKNOWN
     Route: 064
  6. PREDNISOLONE. [Concomitant]
     Active Substance: PREDNISOLONE
     Indication: FOETAL EXPOSURE DURING PREGNANCY
     Dosage: EXPOSURE DURATION: 0? 35+1 WEEKS
     Route: 064
  7. CHOLECALCIFEROL [Concomitant]
     Active Substance: CHOLECALCIFEROL
     Indication: FOETAL EXPOSURE DURING PREGNANCY
     Dosage: MATERNAL DOSE: UNKNOWN
     Route: 064
  8. FLUVASTATIN [Concomitant]
     Active Substance: FLUVASTATIN SODIUM
     Indication: FOETAL EXPOSURE DURING PREGNANCY
     Dosage: EXPOSURE DURATION: 0?8 WEEKS
     Route: 064

REACTIONS (14)
  - Limb reduction defect [Unknown]
  - Premature baby [Unknown]
  - Low birth weight baby [Unknown]
  - Patent ductus arteriosus [Unknown]
  - Talipes [Unknown]
  - Foetal exposure during pregnancy [Unknown]
  - Atrial septal defect [Unknown]
  - Congenital neurological disorder [Unknown]
  - Pierre Robin syndrome [Unknown]
  - Developmental hip dysplasia [Unknown]
  - Retrognathia [Unknown]
  - Aplasia [Unknown]
  - Cleft palate [Unknown]
  - Dysmorphism [Unknown]
